APPROVED DRUG PRODUCT: INOMAX
Active Ingredient: NITRIC OXIDE
Strength: 100PPM **Federal Register determination that product was not discontinued or withdrawn for safety or effectiveness reasons**
Dosage Form/Route: GAS;INHALATION
Application: N020845 | Product #002
Applicant: MALLINCKRODT PHARMACEUTICALS IRELAND LTD
Approved: Dec 23, 1999 | RLD: Yes | RS: No | Type: DISCN

PATENTS:
Patent 8795741 | Expires: Jun 30, 2029
Patent 8282966 | Expires: Jun 30, 2029
Patent 8293284 | Expires: Jun 30, 2029
Patent 8846112 | Expires: Jun 30, 2029
Patent 8776794 | Expires: Jan 6, 2031
Patent 8291904 | Expires: Jan 6, 2031
Patent 8573210 | Expires: Jan 6, 2031
Patent 8573209 | Expires: Jan 6, 2031
Patent 8282966*PED | Expires: Dec 30, 2029
Patent 8291904*PED | Expires: Jul 6, 2031
Patent 8293284*PED | Expires: Dec 30, 2029
Patent 8431163*PED | Expires: Dec 30, 2029
Patent 8776795*PED | Expires: Jul 6, 2031
Patent 8776794*PED | Expires: Jul 6, 2031
Patent 8795741*PED | Expires: Dec 30, 2029
Patent 8573209*PED | Expires: Jul 6, 2031
Patent 8846112*PED | Expires: Dec 30, 2029
Patent 8573210*PED | Expires: Jul 6, 2031
Patent 8431163 | Expires: Jun 30, 2029
Patent 8776795 | Expires: Jan 6, 2031